FAERS Safety Report 6422122-6 (Version None)
Quarter: 2009Q4

REPORT INFORMATION
  Report Type: 
  Country: None (occurrence: None)
  Receive Date: 20091030
  Receipt Date: 20090716
  Transmission Date: 20100525
  Serious: Yes (Hospitalization)
  Sender: FDA-Public Use
  Company Number: FR-PFIZER INC-2009264788

PATIENT
  Age: 66 Year

DRUGS (12)
  1. CISPLATIN [Suspect]
     Indication: METASTATIC GASTRIC CANCER
     Dosage: 110 MG
     Route: 042
     Dates: start: 20071129, end: 20071129
  2. FARMORUBICINE [Suspect]
     Indication: METASTATIC GASTRIC CANCER
     Dosage: 48 MG
     Route: 042
     Dates: start: 20071129, end: 20071129
  3. XELODA [Suspect]
     Indication: METASTATIC GASTRIC CANCER
     Dosage: 3500 MG
     Route: 048
     Dates: start: 20071130, end: 20071213
  4. DIAMICRON [Concomitant]
     Dosage: 30 MG
     Route: 048
     Dates: start: 20071129
  5. GLUCOPHAGE [Concomitant]
     Dosage: UNK
     Route: 048
     Dates: start: 20071129
  6. TARDYFERON [Concomitant]
     Dosage: UNK
     Route: 048
     Dates: start: 20071129
  7. FLECAINIDE ACETATE [Concomitant]
     Dosage: 150 MG, UNK
     Route: 048
     Dates: start: 20071129
  8. TRANXENE [Concomitant]
     Dosage: 10 MG
     Route: 048
     Dates: start: 20071129
  9. STILNOX [Concomitant]
     Dosage: UNK
     Route: 048
     Dates: start: 20071129
  10. NEXIUM [Concomitant]
     Dosage: 40 MG
     Route: 048
     Dates: start: 20071129
  11. DOMPERIDONE [Concomitant]
     Dosage: UNK
     Route: 048
     Dates: start: 20071129
  12. SOLUPRED [Concomitant]
     Dosage: UNK
     Route: 048
     Dates: start: 20071129

REACTIONS (1)
  - LOSS OF CONSCIOUSNESS [None]
